FAERS Safety Report 17779840 (Version 3)
Quarter: 2020Q3

REPORT INFORMATION
  Report Type: Spontaneous
  Country: US (occurrence: US)
  Receive Date: 20200513
  Receipt Date: 20200911
  Transmission Date: 20201102
  Serious: No
  Sender: FDA-Public Use
  Company Number: US-BAYER-2020-076816

PATIENT
  Age: 3 Decade
  Sex: Female
  Weight: 78.01 kg

DRUGS (3)
  1. HUMALOG [Concomitant]
     Active Substance: INSULIN LISPRO
     Dosage: 15 UNITS BEFORE BREAKFAST; 11 UNITS BEFORE DINNER
     Route: 058
  2. MIRENA [Suspect]
     Active Substance: LEVONORGESTREL
     Indication: CONTRACEPTION
     Dosage: 20 ?G PER DAY CONTINUOUSLY
     Route: 015
     Dates: start: 20170524, end: 20200630
  3. FLUOXETINE [Concomitant]
     Active Substance: FLUOXETINE HYDROCHLORIDE
     Dosage: 10 MG, QD
     Route: 048

REACTIONS (4)
  - Complication associated with device [None]
  - Device expulsion [Recovered/Resolved]
  - Menstruation irregular [None]
  - Coital bleeding [None]

NARRATIVE: CASE EVENT DATE: 20200630
